FAERS Safety Report 15762782 (Version 1)
Quarter: 2018Q4

REPORT INFORMATION
  Report Type: Spontaneous
  Country: FR (occurrence: FR)
  Receive Date: 20181226
  Receipt Date: 20181226
  Transmission Date: 20190205
  Serious: Yes (Death)
  Sender: FDA-Public Use
  Company Number: FR-MYLANLABS-2018M1095816

PATIENT
  Age: 76 Year
  Sex: Male
  Weight: 84 kg

DRUGS (3)
  1. MIDAZOLAM [Suspect]
     Active Substance: MIDAZOLAM HYDROCHLORIDE
     Indication: GAIT DISTURBANCE
     Dosage: 10 MILLIGRAM, QD
     Route: 041
     Dates: start: 20180525, end: 20180526
  2. MORPHINE [Suspect]
     Active Substance: MORPHINE
     Indication: GAIT DISTURBANCE
     Dosage: 50 MILLIGRAM, QD
     Route: 041
     Dates: start: 20180525, end: 20180526
  3. SCOPODERM                          /00008701/ [Suspect]
     Active Substance: SCOPOLAMINE
     Indication: BRONCHIAL OBSTRUCTION
     Dosage: 10 MILLIGRAM, QD
     Route: 003
     Dates: start: 20180523, end: 20180526

REACTIONS (2)
  - Device infusion issue [Fatal]
  - Death [Fatal]

NARRATIVE: CASE EVENT DATE: 20180526
